FAERS Safety Report 5713730-6 (Version None)
Quarter: 2008Q2

REPORT INFORMATION
  Report Type: 
  Country: None (occurrence: None)
  Receive Date: 20080418
  Receipt Date: 20080407
  Transmission Date: 20081010
  Serious: Yes (Hospitalization)
  Sender: FDA-Public Use
  Company Number: GXKR2008GB03364

PATIENT
  Age: 50 Year
  Sex: Male

DRUGS (4)
  1. PHENYTOIN [Suspect]
     Dosage: 300 MG, QD,
  2. OMEPRAZOLE [Suspect]
  3. INSULIN (INSULIN) [Concomitant]
  4. VITAMIN B COMPLEX (CALCIUM PANTOTHENATE, [Concomitant]

REACTIONS (9)
  - ANAEMIA MACROCYTIC [None]
  - ANTICONVULSANT DRUG LEVEL ABOVE THERAPEUTIC [None]
  - CEREBELLAR SYNDROME [None]
  - CONVULSION [None]
  - INHIBITORY DRUG INTERACTION [None]
  - LIVER FUNCTION TEST ABNORMAL [None]
  - PROTHROMBIN TIME PROLONGED [None]
  - THERAPEUTIC AGENT TOXICITY [None]
  - THROMBOCYTHAEMIA [None]
